FAERS Safety Report 7355093-9 (Version None)
Quarter: 2011Q1

REPORT INFORMATION
  Report Type: 
  Country: None (occurrence: None)
  Receive Date: 20110316
  Receipt Date: 20110303
  Transmission Date: 20110831
  Serious: Yes (Hospitalization)
  Sender: FDA-Public Use
  Company Number: JP-TEVA-269705ISR

PATIENT
  Age: 70 Year
  Sex: Male

DRUGS (7)
  1. APREPITANT [Concomitant]
     Dosage: 125 MG/DAY
     Dates: end: 20100801
  2. IRINOTECAN HYDROCHLORIDE [Concomitant]
     Dosage: 90 MG
     Dates: start: 20091030, end: 20110223
  3. PANCREAZE [Concomitant]
     Dates: start: 20091030
  4. CISPLATIN [Suspect]
     Dosage: 35 MG
     Route: 042
     Dates: start: 20100801, end: 20110223
  5. APREPITANT [Concomitant]
     Dosage: 160 MG/DAY
     Dates: start: 20100801
  6. CISPLATIN [Suspect]
     Indication: GASTRIC CANCER
     Dosage: 45 MG
     Route: 042
     Dates: start: 20091030, end: 20100801
  7. MAGNESIUM OXIDE [Concomitant]
     Dosage: 990 MG/DAY
     Dates: start: 20091030

REACTIONS (3)
  - ALTERED STATE OF CONSCIOUSNESS [None]
  - DIZZINESS [None]
  - HICCUPS [None]
